FAERS Safety Report 23854144 (Version 2)
Quarter: 2024Q2

REPORT INFORMATION
  Report Type: Spontaneous
  Country: US (occurrence: US)
  Receive Date: 20240514
  Receipt Date: 20240515
  Transmission Date: 20240716
  Serious: Yes (Hospitalization, Other)
  Sender: FDA-Public Use
  Company Number: US-FreseniusKabi-FK202407520

PATIENT
  Age: 70 Year
  Sex: Female

DRUGS (15)
  1. AMIODARONE [Suspect]
     Active Substance: AMIODARONE
     Indication: Atrial flutter
     Dosage: DOSAGE FORM: INFUSION
  2. AMIODARONE [Suspect]
     Active Substance: AMIODARONE
     Indication: Atrioventricular block
     Dosage: DOSAGE ROUTE:  INTRAVENOUS BOLUS
  3. METOPROLOL TARTRATE [Suspect]
     Active Substance: METOPROLOL TARTRATE
     Indication: Atrial flutter
     Dosage: ROUTE: INTRAVENOUS
  4. METOPROLOL TARTRATE [Suspect]
     Active Substance: METOPROLOL TARTRATE
     Indication: Atrioventricular block
     Route: 040
  5. DIGOXIN [Suspect]
     Active Substance: DIGOXIN
     Indication: Atrial flutter
  6. DIGOXIN [Suspect]
     Active Substance: DIGOXIN
     Dosage: TWO DOSES OF DIGOXIN 0.25 MG
  7. APIXABAN [Concomitant]
     Active Substance: APIXABAN
     Indication: Product used for unknown indication
     Dosage: TWICE DAILY
  8. ATORVASTATIN [Concomitant]
     Active Substance: ATORVASTATIN
     Indication: Product used for unknown indication
  9. ATORVASTATIN [Concomitant]
     Active Substance: ATORVASTATIN
  10. CARVEDILOL [Concomitant]
     Active Substance: CARVEDILOL
     Indication: Product used for unknown indication
     Dosage: TWICE DAILY
  11. CLOPIDOGREL [Concomitant]
     Active Substance: CLOPIDOGREL BISULFATE
     Indication: Product used for unknown indication
  12. FUROSEMIDE [Concomitant]
     Active Substance: FUROSEMIDE
     Indication: Product used for unknown indication
     Dosage: 40 MG DAILY
  13. PLAVIX [Concomitant]
     Active Substance: CLOPIDOGREL BISULFATE
     Indication: Product used for unknown indication
  14. LASIX [Concomitant]
     Active Substance: FUROSEMIDE
     Indication: Product used for unknown indication
     Dosage: INTRAVENOUS
  15. LASIX [Concomitant]
     Active Substance: FUROSEMIDE
     Dosage: INTRAVENOUS?TWICE DAILY
     Route: 042

REACTIONS (1)
  - Torsade de pointes [Recovered/Resolved]
